FAERS Safety Report 14023960 (Version 1)
Quarter: 2017Q3

REPORT INFORMATION
  Report Type: Spontaneous
  Country: US (occurrence: None)
  Receive Date: 20170929
  Receipt Date: 20170929
  Transmission Date: 20171128
  Serious: No
  Sender: FDA-Public Use
  Company Number: None

PATIENT
  Age: 49 Year
  Sex: Male
  Weight: 114.31 kg

DRUGS (1)
  1. HYDROCODON-ACETAMINOPHEN [Suspect]
     Active Substance: ACETAMINOPHEN\HYDROCODONE
     Indication: ABDOMINAL PAIN UPPER
     Dosage: ?          QUANTITY:20 TABLET(S);?
     Route: 048

REACTIONS (2)
  - Drug screen positive [None]
  - Job dissatisfaction [None]

NARRATIVE: CASE EVENT DATE: 20170912
